FAERS Safety Report 24394747 (Version 4)
Quarter: 2024Q4

REPORT INFORMATION
  Report Type: Spontaneous
  Country: US (occurrence: US)
  Receive Date: 20241004
  Receipt Date: 20241023
  Transmission Date: 20250115
  Serious: Yes (Other)
  Sender: GLAXOSMITHKLINE
  Company Number: US-GSK-US2024120455

PATIENT

DRUGS (1)
  1. NUCALA [Suspect]
     Active Substance: MEPOLIZUMAB
     Indication: Product used for unknown indication
     Dosage: UNK

REACTIONS (13)
  - Pulmonary congestion [Unknown]
  - Feeling abnormal [Unknown]
  - Bronchitis [Unknown]
  - Hypersensitivity [Unknown]
  - Sneezing [Unknown]
  - Upper-airway cough syndrome [Unknown]
  - Asthma [Unknown]
  - Emotional distress [Unknown]
  - Lactose intolerance [Unknown]
  - Diverticulum intestinal [Unknown]
  - Anxiety [Unknown]
  - Stress [Unknown]
  - Abdominal discomfort [Unknown]

NARRATIVE: CASE EVENT DATE: 20240901
